FAERS Safety Report 13851838 (Version 1)
Quarter: 2017Q3

REPORT INFORMATION
  Report Type: Spontaneous
  Country: US (occurrence: US)
  Receive Date: 20170809
  Receipt Date: 20170809
  Transmission Date: 20171127
  Serious: No
  Sender: FDA-Public Use
  Company Number: US-ROCHE-677444

PATIENT
  Age: 87 Year
  Sex: Female
  Weight: 60.8 kg

DRUGS (5)
  1. COREG [Concomitant]
     Active Substance: CARVEDILOL
     Route: 065
  2. ETODOLAC. [Concomitant]
     Active Substance: ETODOLAC
     Route: 065
  3. BONIVA [Suspect]
     Active Substance: IBANDRONATE SODIUM
     Indication: OSTEOPOROSIS
     Route: 048
     Dates: start: 200911, end: 201010
  4. DIOVAN [Concomitant]
     Active Substance: VALSARTAN
     Route: 065
  5. DIGOXIN. [Concomitant]
     Active Substance: DIGOXIN
     Route: 065

REACTIONS (1)
  - Pain in jaw [Recovering/Resolving]

NARRATIVE: CASE EVENT DATE: 201005
